FAERS Safety Report 14121083 (Version 4)
Quarter: 2021Q1

REPORT INFORMATION
  Report Type: Spontaneous
  Country: US (occurrence: US)
  Receive Date: 20171024
  Receipt Date: 20210120
  Transmission Date: 20210419
  Serious: No
  Sender: FDA-Public Use
  Company Number: US-SA-2017SA047061

PATIENT
  Age: 36 Year
  Sex: Female

DRUGS (4)
  1. LUMIZYME [Suspect]
     Active Substance: ALGLUCOSIDASE ALFA
     Indication: GLYCOGEN STORAGE DISEASE TYPE II
     Dosage: 1550 MG,QOW
     Route: 041
     Dates: start: 20121220, end: 20170214
  2. LUMIZYME [Suspect]
     Active Substance: ALGLUCOSIDASE ALFA
     Dosage: 1550 MG,QOW
     Route: 041
     Dates: start: 20170314
  3. LUMIZYME [Suspect]
     Active Substance: ALGLUCOSIDASE ALFA
     Dosage: 100 MG, QOW
     Route: 042
     Dates: start: 201911, end: 202101
  4. LUMIZYME [Suspect]
     Active Substance: ALGLUCOSIDASE ALFA
     Dosage: 7000 MG, QOW
     Route: 041

REACTIONS (5)
  - Illness [Recovered/Resolved]
  - Intentional dose omission [Unknown]
  - SARS-CoV-2 test positive [Unknown]
  - Illness [Unknown]
  - COVID-19 [Unknown]

NARRATIVE: CASE EVENT DATE: 201702
